FAERS Safety Report 4744687-2 (Version None)
Quarter: 2005Q3

REPORT INFORMATION
  Report Type: 
  Country: None (occurrence: None)
  Receive Date: 20050812
  Receipt Date: 20050812
  Transmission Date: 20060218
  Serious: Yes (Death)
  Sender: FDA-Public Use
  Company Number: None

PATIENT
  Sex: Female

DRUGS (3)
  1. FLUDARABINE PHOSPHATE [Suspect]
     Indication: STEM CELL TRANSPLANT
     Dosage: 43MG Q.D. IV
     Route: 042
     Dates: start: 20050519, end: 20050523
  2. BUSULFAN [Suspect]
     Dosage: 229MG Q.D. IV
     Route: 042
     Dates: start: 20050520, end: 20050523
  3. CAMPATH [Suspect]
     Dosage: 20MGIV
     Route: 042
     Dates: start: 20050519

REACTIONS (1)
  - DISEASE RECURRENCE [None]
